FAERS Safety Report 17900412 (Version 1)
Quarter: 2020Q2

REPORT INFORMATION
  Report Type: Spontaneous
  Country: DE (occurrence: DE)
  Receive Date: 20200616
  Receipt Date: 20200616
  Transmission Date: 20200714
  Serious: Yes (Hospitalization)
  Sender: FDA-Public Use
  Company Number: DE-ACCORD-185431

PATIENT
  Age: 92 Year
  Sex: Female
  Weight: 76.5 kg

DRUGS (7)
  1. AMLODIPINE [Suspect]
     Active Substance: AMLODIPINE BESYLATE
     Indication: PRODUCT USED FOR UNKNOWN INDICATION
     Dosage: 5 MG, 1-0-1-0
  2. APIXABAN [Concomitant]
     Active Substance: APIXABAN
     Dosage: 2.5 MG, 1-0-1-0
  3. BISOPROLOL [Suspect]
     Active Substance: BISOPROLOL
     Indication: PRODUCT USED FOR UNKNOWN INDICATION
     Dosage: 3.75 MG, 1-0-1-0
  4. TORASEMIDE/TORASEMIDE SODIUM [Suspect]
     Active Substance: TORSEMIDE
     Indication: PRODUCT USED FOR UNKNOWN INDICATION
     Dosage: 50 MG, 1-0-0-0
  5. OLMESARTAN/OLMESARTAN MEDOXOMIL [Concomitant]
     Active Substance: OLMESARTAN MEDOXOMIL
     Dosage: 20 MG, 1-0-0-0
  6. KALINOR [Concomitant]
     Dosage: 1-0-0-0, CAPSULE
  7. FIXAPROST [Concomitant]
     Dosage: 0-0-0-1, EYE DROP, STRENGTH: 50 MICROGRAMS / ML + 5MG / ML

REACTIONS (7)
  - Oedema peripheral [Unknown]
  - General physical health deterioration [Unknown]
  - Dyspnoea [Unknown]
  - Product dose omission [Unknown]
  - Cyanosis [Unknown]
  - Rhonchi [Unknown]
  - Hypoxia [Unknown]
